FAERS Safety Report 13054272 (Version 1)
Quarter: 2016Q4

REPORT INFORMATION
  Report Type: Spontaneous
  Country: DE (occurrence: DE)
  Receive Date: 20161222
  Receipt Date: 20161222
  Transmission Date: 20170207
  Serious: Yes (Other)
  Sender: FDA-Public Use
  Company Number: DE-TEVA-720601GER

PATIENT
  Sex: Male

DRUGS (2)
  1. VERAPAMIL-RATIOPHARM 120 MG FILMTABLETTEN [Suspect]
     Active Substance: VERAPAMIL HYDROCHLORIDE
     Indication: HYPERTENSION
     Route: 048
     Dates: start: 20161031, end: 2016
  2. NEBIVOLOL. [Suspect]
     Active Substance: NEBIVOLOL
     Dates: start: 2016, end: 2016

REACTIONS (3)
  - General physical health deterioration [Unknown]
  - Macular degeneration [Unknown]
  - Heart rate irregular [Unknown]

NARRATIVE: CASE EVENT DATE: 2016
